FAERS Safety Report 15935926 (Version 2)
Quarter: 2019Q1

REPORT INFORMATION
  Report Type: Spontaneous
  Country: US (occurrence: US)
  Receive Date: 20190208
  Receipt Date: 20190214
  Transmission Date: 20190417
  Serious: No
  Sender: FDA-Public Use
  Company Number: US-BEH-2019099254

PATIENT
  Age: 45 Year
  Sex: Male

DRUGS (2)
  1. HIZENTRA [Suspect]
     Active Substance: HUMAN IMMUNOGLOBULIN G
     Dosage: 51 G, TOT
     Route: 058
     Dates: start: 20190129, end: 20190129
  2. HIZENTRA [Suspect]
     Active Substance: HUMAN IMMUNOGLOBULIN G
     Indication: CHRONIC INFLAMMATORY DEMYELINATING POLYRADICULONEUROPATHY
     Dosage: 51 G (0.4 G/KG), QW (ON TUESDAY?S EACH WEEK)
     Route: 058
     Dates: start: 201808

REACTIONS (5)
  - Infusion site erythema [Not Recovered/Not Resolved]
  - Infusion site induration [Unknown]
  - Infusion site swelling [Not Recovered/Not Resolved]
  - Infusion site bruising [Not Recovered/Not Resolved]
  - Infusion site discomfort [Unknown]

NARRATIVE: CASE EVENT DATE: 20190129
